FAERS Safety Report 17975915 (Version 1)
Quarter: 2020Q3

REPORT INFORMATION
  Report Type: Spontaneous
  Country: US (occurrence: US)
  Receive Date: 20200702
  Receipt Date: 20200702
  Transmission Date: 20201103
  Serious: Yes (Hospitalization)
  Sender: FDA-Public Use
  Company Number: US-ASSERTIO THERAPEUTICS, INC.-US-2020DEP000250

PATIENT
  Age: 63 Year
  Sex: Female

DRUGS (1)
  1. CAMBIA [Suspect]
     Active Substance: DICLOFENAC POTASSIUM
     Indication: MIGRAINE
     Dosage: DISSOLVE 1 PACKET AS DIRECTED AND TAKE BY MOUTH TWICE DAILY AS NEEDED FOR MIGRAINE
     Route: 048

REACTIONS (3)
  - Product use in unapproved indication [Unknown]
  - Spinal fusion surgery [Recovered/Resolved]
  - Spinal laminectomy [Recovered/Resolved]

NARRATIVE: CASE EVENT DATE: 20200507
